FAERS Safety Report 5705019-6 (Version None)
Quarter: 2008Q2

REPORT INFORMATION
  Report Type: 
  Country: None (occurrence: None)
  Receive Date: 20080414
  Receipt Date: 20080403
  Transmission Date: 20081010
  Serious: Yes (Hospitalization, Other)
  Sender: FDA-Public Use
  Company Number: CA-PFIZER INC-2008030157

PATIENT
  Sex: Female
  Weight: 87 kg

DRUGS (10)
  1. SOMAVERT [Suspect]
     Indication: ACROMEGALY
     Route: 058
     Dates: start: 20080331, end: 20080331
  2. SOMAVERT [Suspect]
     Route: 058
  3. LEVOTHYROXINE SODIUM [Concomitant]
     Route: 048
  4. METFORMIN HCL [Concomitant]
     Route: 048
  5. ESCITALOPRAM OXALATE [Concomitant]
     Route: 048
  6. DROSPIRENONE + ETHINYL ESTRADIOL [Concomitant]
  7. SANDOSTATIN LAR [Concomitant]
     Route: 030
  8. GLYCERIN [Concomitant]
     Dosage: TEXT:AS NEEDED
     Route: 054
  9. TYLENOL (CAPLET) [Concomitant]
     Dosage: TEXT:AS NEEDED
     Route: 048
  10. ADVIL [Concomitant]
     Dosage: TEXT:AS NEEDED
     Route: 048

REACTIONS (6)
  - ABDOMINAL RIGIDITY [None]
  - BACK PAIN [None]
  - DISCOMFORT [None]
  - HYPERSENSITIVITY [None]
  - OCULAR HYPERAEMIA [None]
  - SENSATION OF FOREIGN BODY [None]
